FAERS Safety Report 4484574-0 (Version None)
Quarter: 2004Q3

REPORT INFORMATION
  Report Type: 
  Country: None (occurrence: None)
  Receive Date: 20040921
  Receipt Date: 20031216
  Transmission Date: 20050211
  Serious: Yes (Hospitalization)
  Sender: FDA-Public Use
  Company Number: 163-20785-03120454

PATIENT
  Age: 68 Year
  Sex: Female
  Weight: 56.6996 kg

DRUGS (8)
  1. THALOMID [Suspect]
     Indication: SMALL CELL LUNG CANCER STAGE UNSPECIFIED
     Dosage: 200 MG, QHS, ORAL
     Route: 048
     Dates: start: 20030828, end: 20031214
  2. PREDNISONE [Concomitant]
  3. ATROVENT [Concomitant]
  4. ADVAIR INHALER [Concomitant]
  5. CELEXA [Concomitant]
  6. PRILOSEC [Concomitant]
  7. COLACE (DOCUSATE SODIUM) [Concomitant]
  8. LEVOXYL [Concomitant]

REACTIONS (4)
  - DYSPNOEA EXACERBATED [None]
  - PAINFUL RESPIRATION [None]
  - PRODUCTIVE COUGH [None]
  - PULMONARY EMBOLISM [None]
